FAERS Safety Report 26207096 (Version 1)
Quarter: 2025Q4

REPORT INFORMATION
  Report Type: Spontaneous
  Country: GB (occurrence: GB)
  Receive Date: 20251229
  Receipt Date: 20251229
  Transmission Date: 20260118
  Serious: Yes (Other)
  Sender: RANBAXY
  Company Number: GB-MHRA-MED-202512160901431950-PFKLD

PATIENT
  Age: 64 Year
  Sex: Female

DRUGS (2)
  1. FLUCONAZOLE [Suspect]
     Active Substance: FLUCONAZOLE
     Indication: Adverse drug reaction
     Dosage: 200MG ON FIRST DAY THEN 100MG AFTER THAT
     Route: 065
     Dates: start: 20251215, end: 20251216
  2. LANSOPRAZOLE [Concomitant]
     Active Substance: LANSOPRAZOLE
     Indication: Gastrooesophageal reflux disease
     Dosage: UNK
     Route: 065

REACTIONS (1)
  - Muscle spasms [Recovering/Resolving]

NARRATIVE: CASE EVENT DATE: 20251215
